FAERS Safety Report 5429773-6 (Version None)
Quarter: 2007Q3

REPORT INFORMATION
  Report Type: 
  Country: None (occurrence: None)
  Receive Date: 20070731
  Receipt Date: 20070412
  Transmission Date: 20080115
  Serious: No
  Sender: FDA-Public Use
  Company Number: US200704002935

PATIENT
  Age: 55 Year
  Sex: Male

DRUGS (8)
  1. BYETTA [Suspect]
     Indication: TYPE 2 DIABETES MELLITUS
     Dosage: 5 UG, 2/D, SUBCUTANEOUS
     Route: 058
     Dates: start: 20061101
  2. EXENATIDE 5MCG PEN, DISPOSABLE DEVICE (EXENATIDE PEN (5MCG)0 PEN, DISP [Concomitant]
  3. ACTOS [Concomitant]
  4. NOVOLIN N [Concomitant]
  5. NOVOLIN R [Concomitant]
  6. LISINOPRIL/HCTZ (HYDROCHLOROTHIAZIDE, LISINOPRIL) [Concomitant]
  7. LISINOPRIL [Concomitant]
  8. CARDURA [Concomitant]

REACTIONS (2)
  - CONSTIPATION [None]
  - HYPERTENSION [None]
